FAERS Safety Report 5485235-1 (Version None)
Quarter: 2007Q4

REPORT INFORMATION
  Report Type: 
  Country: None (occurrence: None)
  Receive Date: 20071010
  Receipt Date: 20071010
  Transmission Date: 20080405
  Serious: Yes (Other)
  Sender: FDA-Public Use
  Company Number: None

PATIENT
  Sex: Female
  Weight: 58.9676 kg

DRUGS (1)
  1. TRIPHASIL-21 [Suspect]
     Indication: CONTRACEPTION
     Dosage: 1 TABLET  DAILY  PO
     Route: 048
     Dates: start: 20070715, end: 20070801

REACTIONS (1)
  - SUPPRESSED LACTATION [None]
